FAERS Safety Report 17939606 (Version 1)
Quarter: 2020Q2

REPORT INFORMATION
  Report Type: Spontaneous
  Country: US (occurrence: US)
  Receive Date: 20200625
  Receipt Date: 20200625
  Transmission Date: 20200714
  Serious: Yes (Other)
  Sender: FDA-Public Use
  Company Number: US-AUROBINDO-AUR-APL-2020-030016

PATIENT
  Age: 4 Decade
  Sex: Female

DRUGS (7)
  1. CITALOPRAM [Suspect]
     Active Substance: CITALOPRAM HYDROBROMIDE
     Dosage: 50 MILLIGRAM, ONCE A DAY
     Route: 065
     Dates: start: 2005
  2. QUETIAPINE. [Suspect]
     Active Substance: QUETIAPINE
     Indication: BIPOLAR DISORDER
     Dosage: 25 MILLIGRAM, ONCE OR TWICE DAILY
     Route: 065
  3. ZOPICLONE [Suspect]
     Active Substance: ZOPICLONE
     Indication: SLEEP DISORDER
     Dosage: 7.5 MILLIGRAM, ONCE A DAY
     Route: 065
  4. MELATONIN [Concomitant]
     Active Substance: MELATONIN
     Indication: INSOMNIA
     Dosage: UNK
     Route: 065
  5. CITALOPRAM [Suspect]
     Active Substance: CITALOPRAM HYDROBROMIDE
     Indication: PSYCHOTHERAPY
     Dosage: 20 MILLIGRAM, ONCE A DAY
     Route: 065
     Dates: start: 2005
  6. ALPRAZOLAM. [Suspect]
     Active Substance: ALPRAZOLAM
     Indication: SLEEP DISORDER
     Dosage: 0.5 MILLIGRAM, ONCE A DAY
     Route: 065
  7. LITHIUM CARBONATE. [Suspect]
     Active Substance: LITHIUM CARBONATE
     Indication: BIPOLAR DISORDER
     Dosage: 300 MILLIGRAM, 3 TO 4 TIMES DAILY
     Route: 065
     Dates: start: 201308, end: 201502

REACTIONS (11)
  - Fatigue [Recovering/Resolving]
  - Weight increased [Recovering/Resolving]
  - Memory impairment [Recovering/Resolving]
  - Hypothyroidism [Recovering/Resolving]
  - Insomnia [Unknown]
  - Pain in extremity [Unknown]
  - Sluggishness [Recovering/Resolving]
  - Cognitive disorder [Recovering/Resolving]
  - Impaired quality of life [Recovering/Resolving]
  - Withdrawal syndrome [Unknown]
  - Restless legs syndrome [Unknown]
